FAERS Safety Report 10992414 (Version 1)
Quarter: 2015Q2

REPORT INFORMATION
  Report Type: Spontaneous
  Country: US (occurrence: US)
  Receive Date: 20150406
  Receipt Date: 20150406
  Transmission Date: 20150821
  Serious: Yes (Hospitalization)
  Sender: FDA-Public Use
  Company Number: US-ALLERGAN-1505766US

PATIENT
  Sex: Female

DRUGS (1)
  1. RESTASIS [Suspect]
     Active Substance: CYCLOSPORINE
     Indication: DRY EYE
     Dosage: 2 GTT, Q12H
     Route: 047
     Dates: end: 20150328

REACTIONS (8)
  - Inappropriate schedule of drug administration [Unknown]
  - Eye pruritus [Unknown]
  - Lacrimation increased [Unknown]
  - Ocular hyperaemia [Unknown]
  - Vision blurred [Unknown]
  - Hospitalisation [Unknown]
  - Headache [Unknown]
  - Eye pain [Unknown]
